FAERS Safety Report 10525512 (Version 3)
Quarter: 2014Q4

REPORT INFORMATION
  Report Type: Spontaneous
  Country: HU (occurrence: HU)
  Receive Date: 20141017
  Receipt Date: 20141121
  Transmission Date: 20150528
  Serious: Yes (Hospitalization, Other)
  Sender: FDA-Public Use
  Company Number: HU-PFIZER INC-2014282599

PATIENT
  Age: 65 Year
  Sex: Male

DRUGS (3)
  1. COVERCARD [Suspect]
     Active Substance: AMLODIPINE BESYLATE\PERINDOPRIL ARGININE
     Indication: HYPERTENSION
  2. SUTENT [Suspect]
     Active Substance: SUNITINIB MALATE
     Indication: RENAL CANCER METASTATIC
     Dosage: 50 MG, CYCLIC DAILY IN SCHEME 2/1 (2 DAYS TAKES, 1 DAY BREAK)
     Dates: start: 20140110, end: 20141014
  3. SUTENT [Suspect]
     Active Substance: SUNITINIB MALATE
     Dosage: 50 MG, CYCLIC 6TH CYCLE 1X/DAY (2 DAYS TAKES, 1 DAY BREAK)UNK
     Dates: start: 20141021

REACTIONS (6)
  - Laryngeal oedema [Recovered/Resolved]
  - Blood pressure increased [Not Recovered/Not Resolved]
  - Mouth swelling [Recovered/Resolved]
  - Blood count abnormal [Recovering/Resolving]
  - Hypersensitivity [Recovered/Resolved]
  - Swelling face [Recovered/Resolved]

NARRATIVE: CASE EVENT DATE: 2014
